FAERS Safety Report 6397457-6 (Version None)
Quarter: 2009Q4

REPORT INFORMATION
  Report Type: 
  Country: None (occurrence: None)
  Receive Date: 20091012
  Receipt Date: 20091005
  Transmission Date: 20100525
  Serious: Yes (Hospitalization)
  Sender: FDA-Public Use
  Company Number: FR-ROXANE LABORATORIES, INC.-2009-RO-01026RO

PATIENT
  Age: 54 Year
  Sex: Female

DRUGS (13)
  1. ZOLPIDEM [Suspect]
     Indication: CATATONIA
     Route: 048
  2. CITALOPRAM HYDROBROMIDE [Suspect]
     Indication: MAJOR DEPRESSION
     Dosage: 20 MG
  3. ALCOHOL [Suspect]
  4. CLORAZEPATE DIPOTASSIUM [Suspect]
     Indication: ALCOHOL WITHDRAWAL SYNDROME
     Dosage: 100 MG
  5. CLORAZEPATE DIPOTASSIUM [Suspect]
     Dosage: 20 MG
  6. THIAMINE HCL [Suspect]
     Indication: ALCOHOL WITHDRAWAL SYNDROME
     Dosage: 1000 MG
     Route: 048
  7. PYRIDOXINE [Suspect]
     Indication: ALCOHOL WITHDRAWAL SYNDROME
     Dosage: 500 MG
     Route: 048
  8. CYAMEMAZINE [Suspect]
     Indication: MAJOR DEPRESSION
     Dosage: 25 MG
  9. ACAMPROSATE [Suspect]
     Dosage: 1332 MG
  10. NICARDIPINE HYDROCHLORIDE [Suspect]
     Indication: ESSENTIAL HYPERTENSION
     Dosage: 50 MG
  11. LORAZEPAM [Concomitant]
     Indication: CATATONIA
     Dosage: 15 MG
  12. LORAZEPAM [Concomitant]
     Dosage: 5 MG
  13. VALPROMIDE [Concomitant]
     Dosage: 1200 MG

REACTIONS (2)
  - CATATONIA [None]
  - DISEASE RECURRENCE [None]
